FAERS Safety Report 5810619-9 (Version None)
Quarter: 2008Q3

REPORT INFORMATION
  Report Type: 
  Country: None (occurrence: None)
  Receive Date: 20080710
  Receipt Date: 20080707
  Transmission Date: 20090109
  Serious: Yes (Hospitalization)
  Sender: FDA-Public Use
  Company Number: T07-USA-00659-01

PATIENT
  Age: 75 Year
  Sex: Female
  Weight: 58.9676 kg

DRUGS (14)
  1. MEMANTINE HCL [Suspect]
     Indication: DEMENTIA ALZHEIMER'S TYPE
     Dosage: 28 MG QD PO
     Route: 048
     Dates: start: 20061112, end: 20070205
  2. LIPITOR [Concomitant]
  3. ALLEGRA [Concomitant]
  4. EXELON [Concomitant]
  5. PRILOSEC [Concomitant]
  6. CALCIUM [Concomitant]
  7. CENTRUM SILVER [Concomitant]
  8. ASPIRIN [Concomitant]
  9. GLYCOLAX [Concomitant]
  10. DEPAXOTE (VALPROATE SEMISODIUM) [Concomitant]
  11. REMINY(GALANTAMINE) [Concomitant]
  12. KLONOPIN [Concomitant]
  13. TYLENOL PM [Concomitant]
  14. BENADRYL [Concomitant]

REACTIONS (28)
  - ABNORMAL BEHAVIOUR [None]
  - AGITATION [None]
  - BLOOD PRESSURE DECREASED [None]
  - BODY TEMPERATURE INCREASED [None]
  - BRAIN SCAN ABNORMAL [None]
  - CARDIOMEGALY [None]
  - DEHYDRATION [None]
  - DEMENTIA [None]
  - DRUG INEFFECTIVE [None]
  - DRUG WITHDRAWAL SYNDROME [None]
  - DYSKINESIA [None]
  - DYSPHAGIA [None]
  - FALL [None]
  - GRIMACING [None]
  - HAEMATOCRIT DECREASED [None]
  - HYPOTENSION [None]
  - INSOMNIA [None]
  - LETHARGY [None]
  - MOVEMENT DISORDER [None]
  - POSTICTAL STATE [None]
  - RENAL INJURY [None]
  - RENAL TUBULAR NECROSIS [None]
  - RHABDOMYOLYSIS [None]
  - STATUS EPILEPTICUS [None]
  - TREMOR [None]
  - TYPE 2 DIABETES MELLITUS [None]
  - UNRESPONSIVE TO STIMULI [None]
  - WHITE BLOOD CELL COUNT INCREASED [None]
